FAERS Safety Report 25879114 (Version 2)
Quarter: 2025Q4

REPORT INFORMATION
  Report Type: Spontaneous
  Country: US (occurrence: US)
  Receive Date: 20251003
  Receipt Date: 20251019
  Transmission Date: 20260118
  Serious: No
  Sender: TRAVERE THERAPEUTICS
  Company Number: US-TRAVERE-2025TVT01532

PATIENT
  Sex: Female

DRUGS (2)
  1. FILSPARI [Suspect]
     Active Substance: SPARSENTAN
     Indication: IgA nephropathy
     Route: 048
     Dates: start: 20250819
  2. FILSPARI [Suspect]
     Active Substance: SPARSENTAN
     Dosage: BROKE 400 MG TABLET IN HALF
     Route: 048

REACTIONS (2)
  - Hypotension [Unknown]
  - Off label use [Unknown]
